FAERS Safety Report 14901013 (Version 1)
Quarter: 2018Q2

REPORT INFORMATION
  Report Type: Spontaneous
  Country: SK (occurrence: SK)
  Receive Date: 20180516
  Receipt Date: 20180516
  Transmission Date: 20180711
  Serious: Yes (Other)
  Sender: FDA-Public Use
  Company Number: SK-GLAXOSMITHKLINE-SK2018GSK030547

PATIENT
  Age: 58 Year
  Sex: Male

DRUGS (2)
  1. ANORO ELLIPTA [Suspect]
     Active Substance: UMECLIDINIUM BROMIDE\VILANTEROL TRIFENATATE
     Indication: CHRONIC OBSTRUCTIVE PULMONARY DISEASE
     Dosage: UNK, 1-0-0
     Dates: start: 201510, end: 201601
  2. ACLIDINIUM + FORMOTEROL [Suspect]
     Active Substance: ACLIDINIUM BROMIDE\FORMOTEROL FUMARATE
     Indication: CHRONIC OBSTRUCTIVE PULMONARY DISEASE
     Dosage: UNK
     Dates: start: 201601, end: 201604

REACTIONS (10)
  - Dry mouth [Recovered/Resolved]
  - Upper respiratory tract infection [Recovered/Resolved]
  - Dysgeusia [Recovered/Resolved]
  - Visual impairment [Recovered/Resolved]
  - Respiratory tract infection [Recovered/Resolved]
  - Oral discomfort [Recovered/Resolved]
  - Chronic obstructive pulmonary disease [Recovered/Resolved]
  - Condition aggravated [Unknown]
  - Sputum discoloured [Unknown]
  - Haemophilus infection [Recovered/Resolved]

NARRATIVE: CASE EVENT DATE: 201510
